FAERS Safety Report 25062818 (Version 1)
Quarter: 2025Q1

REPORT INFORMATION
  Report Type: Spontaneous
  Country: US (occurrence: US)
  Receive Date: 20250311
  Receipt Date: 20250311
  Transmission Date: 20250409
  Serious: Yes (Death)
  Sender: SYMOGEN
  Company Number: US-PARTNER THERAPEUTICS-2025PTX00018

PATIENT
  Age: 4 Year
  Sex: Female
  Weight: 15.011 kg

DRUGS (2)
  1. LEUKINE [Suspect]
     Active Substance: SARGRAMOSTIM
     Dosage: INJECT 155 ?G (0.62 ML), UNDER THE SKIN ONCE DAILY FOR 14 DAYS ON, THEN 14 DAYS OFF OF EACH 28 DAY C
     Route: 058
  2. STERILE WATER [Concomitant]
     Active Substance: WATER

REACTIONS (1)
  - Death [Fatal]

NARRATIVE: CASE EVENT DATE: 20250122
